FAERS Safety Report 18475722 (Version 1)
Quarter: 2020Q4

REPORT INFORMATION
  Report Type: Spontaneous
  Country: IT (occurrence: IT)
  Receive Date: 20201107
  Receipt Date: 20201107
  Transmission Date: 20210114
  Serious: Yes (Other)
  Sender: FDA-Public Use
  Company Number: IT-SUN PHARMACEUTICAL INDUSTRIES LTD-2020RR-266797

PATIENT
  Age: 29 Year
  Sex: Female

DRUGS (4)
  1. ESOMEPRAZOLE. [Suspect]
     Active Substance: ESOMEPRAZOLE MAGNESIUM
     Indication: DRUG ABUSE
     Dosage: IN TOTAL
     Route: 048
     Dates: start: 20200712, end: 20200712
  2. KETODOL  25 MG + 200 MG COMPRESSE [Suspect]
     Active Substance: KETOPROFEN\SUCRALFATE
     Indication: DRUG ABUSE
     Dosage: 6 DOSAGE FORMS, IN TOTAL
     Route: 048
     Dates: start: 20200712, end: 20200712
  3. OKI 80 MG GRANULATO PER SOLUZIONE ORALE [Suspect]
     Active Substance: KETOPROFEN LYSINE
     Indication: DRUG ABUSE
     Dosage: 160 MILLIGRAMS, IN TOTAL
     Route: 048
     Dates: start: 20200712, end: 20200712
  4. FLUIFORT 2,7 G GRANULATO PER SOLUZIONE ORALE [Suspect]
     Active Substance: CARBOCYSTEINE LYSINE
     Indication: DRUG ABUSE
     Dosage: 5.4 GRAMS, IN TOTAL
     Route: 048
     Dates: start: 20200712, end: 20200712

REACTIONS (3)
  - Psychomotor hyperactivity [Recovering/Resolving]
  - Drug abuse [Recovering/Resolving]
  - Abdominal pain [Recovering/Resolving]

NARRATIVE: CASE EVENT DATE: 20200712
